FAERS Safety Report 10086614 (Version 2)
Quarter: 2014Q2

REPORT INFORMATION
  Report Type: Spontaneous
  Country: US (occurrence: US)
  Receive Date: 20140418
  Receipt Date: 20140429
  Transmission Date: 20141212
  Serious: Yes (Life-Threatening, Hospitalization)
  Sender: FDA-Public Use
  Company Number: US-ACTELION-A-US2014-97421

PATIENT
  Age: 48 Year
  Sex: Male

DRUGS (1)
  1. VELETRI [Suspect]
     Indication: PORTOPULMONARY HYPERTENSION
     Dosage: UNK
     Route: 042
     Dates: start: 201303

REACTIONS (3)
  - Liver transplant [Recovered/Resolved]
  - Weight decreased [Unknown]
  - Diarrhoea [Unknown]
